FAERS Safety Report 8096536-5 (Version None)
Quarter: 2012Q1

REPORT INFORMATION
  Report Type: 
  Country: None (occurrence: None)
  Receive Date: 20120129
  Receipt Date: 20111110
  Transmission Date: 20120608
  Serious: No
  Sender: FDA-Public Use
  Company Number: US-ABBOTT-11P-163-0863238-00

PATIENT
  Age: 63 Year
  Sex: Female
  Weight: 76.272 kg

DRUGS (10)
  1. AMLODIPINE [Concomitant]
     Indication: BLOOD PRESSURE INCREASED
     Dosage: 5/25 MG DAILY
  2. HUMIRA [Suspect]
     Indication: PSORIATIC ARTHROPATHY
  3. PROZAC [Concomitant]
     Indication: PRODUCT USED FOR UNKNOWN INDICATION
  4. HYDROCHLOROTHIAZIDE [Concomitant]
     Indication: PRODUCT USED FOR UNKNOWN INDICATION
     Dosage: ONCE DAILY IN THE MORNING
  5. VITAMIN TAB [Concomitant]
     Indication: PRODUCT USED FOR UNKNOWN INDICATION
     Dosage: DAILY
  6. CALCIUM [Concomitant]
     Indication: PRODUCT USED FOR UNKNOWN INDICATION
  7. VITAMIN D [Concomitant]
     Indication: PRODUCT USED FOR UNKNOWN INDICATION
  8. METOPROLOL TARTRATE [Concomitant]
     Indication: BLOOD PRESSURE INCREASED
  9. CRESTOR [Concomitant]
     Indication: BLOOD CHOLESTEROL INCREASED
  10. HUMIRA [Suspect]
     Indication: RHEUMATOID ARTHRITIS
     Dates: start: 20110913, end: 20110913

REACTIONS (5)
  - WHITE BLOOD CELL COUNT INCREASED [None]
  - ASTHENIA [None]
  - PSORIASIS [None]
  - FATIGUE [None]
  - DERMATITIS [None]
